FAERS Safety Report 8972779 (Version 1)
Quarter: 2012Q4

REPORT INFORMATION
  Report Type: Spontaneous
  Country: JP (occurrence: None)
  Receive Date: 20121207
  Receipt Date: 20121207
  Transmission Date: 20130627
  Serious: Yes (Other)
  Sender: FDA-Public Use
  Company Number: DSA_61211_2012

PATIENT

DRUGS (3)
  1. FLUOROURACIL (FLUOROURACIL) [Suspect]
     Indication: COLORECTAL CANCER METASTATIC
     Dosage: (DF;  Every  other week Intravenous  (not otherwise specified))
(Unknown  until not continuing)
     Route: 042
  2. OXALIPLATIN (OXALIPLATIN) [Suspect]
     Indication: COLORECTAL CANCER METASTATIC
     Dosage: (DF; Every other week Intravenous  (otherwise not specified)
(Unknown until not continuing)
     Route: 042
  3. LEUCOVORIN [Suspect]
     Indication: COLORECTAL CANCER METASTATIC
     Dosage: (DF; Every other week Intravenous  (not otherwise specified))
(Unknown  until not continuing)
     Route: 042

REACTIONS (1)
  - Fatigue [None]
